FAERS Safety Report 5295993-7 (Version None)
Quarter: 2007Q2

REPORT INFORMATION
  Report Type: 
  Country: None (occurrence: None)
  Receive Date: 20070406
  Receipt Date: 20070327
  Transmission Date: 20071010
  Serious: Yes (Other)
  Sender: FDA-Public Use
  Company Number: 2007RR-06652

PATIENT
  Age: 46 Year
  Sex: Male

DRUGS (2)
  1. FLUOXETINE [Suspect]
     Indication: OBSESSIVE-COMPULSIVE DISORDER
     Dosage: 20 KG, QD, ORAL
     Route: 048
     Dates: start: 19990101, end: 19990101
  2. HALOPERIDOL [Concomitant]

REACTIONS (2)
  - CONDITION AGGRAVATED [None]
  - HUNTINGTON'S CHOREA [None]
